FAERS Safety Report 7587540-1 (Version None)
Quarter: 2011Q3

REPORT INFORMATION
  Report Type: 
  Country: None (occurrence: None)
  Receive Date: 20110704
  Receipt Date: 20110620
  Transmission Date: 20111222
  Serious: Yes (Other)
  Sender: FDA-Public Use
  Company Number: PHHY2011US54784

PATIENT
  Age: 71 Year
  Sex: Female

DRUGS (5)
  1. LIPITOR [Concomitant]
  2. XALATAN [Concomitant]
     Indication: GLAUCOMA
  3. RECLAST [Suspect]
     Dosage: 5 MG
     Dates: start: 20110127
  4. CITRACAL [Concomitant]
  5. RECLAST [Suspect]
     Indication: OSTEITIS DEFORMANS
     Dosage: 5 MG
     Route: 042
     Dates: start: 20081118

REACTIONS (4)
  - LIMB INJURY [None]
  - ABDOMINAL DISCOMFORT [None]
  - FOOT FRACTURE [None]
  - ARTHRITIS [None]
